FAERS Safety Report 7777531-X (Version None)
Quarter: 2011Q3

REPORT INFORMATION
  Report Type: 
  Country: None (occurrence: None)
  Receive Date: 20110926
  Receipt Date: 20110912
  Transmission Date: 20111222
  Serious: Yes (Hospitalization, Other)
  Sender: FDA-Public Use
  Company Number: CA-ELI_LILLY_AND_COMPANY-CA201109002910

PATIENT
  Sex: Female

DRUGS (7)
  1. ZOPICLONE [Concomitant]
  2. ZYPREXA [Suspect]
     Indication: DEPRESSION
     Dosage: 2.5 MG, QD
  3. EFFEXOR [Concomitant]
  4. LORAZEPAM [Concomitant]
  5. ZYPREXA [Suspect]
     Dosage: 5 MG, QD
  6. ZOLOFT [Concomitant]
  7. TRAZODONE HYDROCHLORIDE [Concomitant]

REACTIONS (23)
  - BACTERAEMIA [None]
  - HYPERSENSITIVITY [None]
  - NERVE INJURY [None]
  - CATARACT [None]
  - CARDIAC FAILURE [None]
  - PULMONARY TUBERCULOSIS [None]
  - OVERDOSE [None]
  - WEIGHT INCREASED [None]
  - UTERINE PROLAPSE [None]
  - DYSLIPIDAEMIA [None]
  - APPENDICITIS PERFORATED [None]
  - LOSS OF CONSCIOUSNESS [None]
  - RENAL IMPAIRMENT [None]
  - PNEUMONIA [None]
  - OEDEMA PERIPHERAL [None]
  - CEREBROVASCULAR ACCIDENT [None]
  - MYOCARDIAL INFARCTION [None]
  - HYPERTENSION [None]
  - BUNDLE BRANCH BLOCK [None]
  - CONVULSION [None]
  - TYPE 2 DIABETES MELLITUS [None]
  - POLYP [None]
  - OFF LABEL USE [None]
